FAERS Safety Report 13858205 (Version 2)
Quarter: 2017Q3

REPORT INFORMATION
  Report Type: Spontaneous
  Country: JP (occurrence: JP)
  Receive Date: 20170811
  Receipt Date: 20170831
  Transmission Date: 20171127
  Serious: Yes (Other)
  Sender: FDA-Public Use
  Company Number: JP-ASTELLAS-2017JP015372

PATIENT
  Age: 86 Year
  Sex: Male

DRUGS (1)
  1. XTANDI [Suspect]
     Active Substance: ENZALUTAMIDE
     Indication: HORMONE-REFRACTORY PROSTATE CANCER
     Dosage: 40 MG, TWICE DAILY, IN THE MORNING, AT NIGHT
     Route: 048
     Dates: start: 20170501

REACTIONS (3)
  - Intentional product misuse [Unknown]
  - Dysphagia [Unknown]
  - Product size issue [Unknown]

NARRATIVE: CASE EVENT DATE: 2017
